FAERS Safety Report 5133665-X (Version None)
Quarter: 2006Q4

REPORT INFORMATION
  Report Type: 
  Country: None (occurrence: None)
  Receive Date: 20061024
  Receipt Date: 20061019
  Transmission Date: 20070319
  Serious: Yes (Disabling)
  Sender: FDA-Public Use
  Company Number: 2006AP04962

PATIENT
  Age: 75 Year
  Sex: Male

DRUGS (6)
  1. IRESSA [Suspect]
     Indication: ADENOSQUAMOUS CELL LUNG CANCER
     Route: 048
     Dates: start: 20060907, end: 20061017
  2. CISPLATIN [Concomitant]
     Dosage: FIRST LINE TREATMENT
  3. DOCETAXEL [Concomitant]
     Dosage: FIRST LINE TREATMENT
  4. GEMCITABINE [Concomitant]
     Dosage: SECOND LINE TREATMENT
  5. VINORELBINE [Concomitant]
     Dosage: SECOND LINE TREATMENT
  6. RADIOTHERAPY [Concomitant]
     Dosage: 50 TO 60 GY TO MEDIASTINUM AND LEFT HILUS

REACTIONS (1)
  - DISSEMINATED INTRAVASCULAR COAGULATION [None]
